FAERS Safety Report 24869769 (Version 1)
Quarter: 2025Q1

REPORT INFORMATION
  Report Type: Report from Study
  Country: BY (occurrence: BY)
  Receive Date: 20250121
  Receipt Date: 20250121
  Transmission Date: 20250408
  Serious: Yes (Death)
  Sender: MYLAN
  Company Number: BY-MYLANLABS-2025M1005243

PATIENT
  Age: 40 Year
  Sex: Male
  Weight: 56 kg

DRUGS (7)
  1. PRETOMANID [Suspect]
     Active Substance: PRETOMANID
     Indication: Tuberculosis
     Dosage: 200 MILLIGRAM, QD (OD)
     Route: 048
     Dates: start: 20230609, end: 20231123
  2. BEDAQUILINE [Suspect]
     Active Substance: BEDAQUILINE
     Indication: Tuberculosis
     Dosage: 400 MILLIGRAM, QD (OD FOR 2 WEEKS)
     Route: 048
     Dates: start: 20230609
  3. BEDAQUILINE [Suspect]
     Active Substance: BEDAQUILINE
     Dosage: 200 MILLIGRAM, 3XW (TIW)
     Route: 048
     Dates: end: 20231123
  4. LINEZOLID [Suspect]
     Active Substance: LINEZOLID
     Indication: Tuberculosis
     Dosage: 600 MILLIGRAM, QD (OD FOR 112 DOSES)
     Route: 048
     Dates: start: 20230609
  5. LINEZOLID [Suspect]
     Active Substance: LINEZOLID
     Dosage: 300 MILLIGRAM, QD (OD)
     Route: 048
     Dates: end: 20231123
  6. MOXIFLOXACIN [Suspect]
     Active Substance: MOXIFLOXACIN
     Indication: Tuberculosis
     Dosage: 400 MILLIGRAM, QD (OD)
     Route: 048
     Dates: start: 20230609, end: 20230716
  7. CLOFAZIMINE [Suspect]
     Active Substance: CLOFAZIMINE
     Indication: Tuberculosis
     Dosage: 100 MILLIGRAM, QD (OD)
     Route: 048
     Dates: start: 20230717, end: 20231123

REACTIONS (1)
  - COVID-19 pneumonia [Fatal]

NARRATIVE: CASE EVENT DATE: 20241108
